FAERS Safety Report 13613975 (Version 3)
Quarter: 2017Q3

REPORT INFORMATION
  Report Type: Spontaneous
  Country: DE (occurrence: DE)
  Receive Date: 20170606
  Receipt Date: 20170912
  Transmission Date: 20171127
  Serious: Yes (Hospitalization, Other)
  Sender: FDA-Public Use
  Company Number: PHHY2017DE082065

PATIENT
  Age: 93 Year
  Sex: Male
  Weight: 82 kg

DRUGS (7)
  1. DIGIMED [Concomitant]
     Active Substance: DIGOXIN
     Indication: ATRIAL FIBRILLATION
     Dosage: 0.07 OT, QD
     Route: 065
     Dates: start: 20100406
  2. TORASEMID [Concomitant]
     Active Substance: TORSEMIDE
     Indication: CARDIAC FAILURE
     Dosage: 1 DF, BID
     Route: 065
     Dates: start: 20160811
  3. ATORVASTATIN [Concomitant]
     Active Substance: ATORVASTATIN
     Indication: PRODUCT USED FOR UNKNOWN INDICATION
     Dosage: 20 OT, QD
     Route: 065
  4. ELIQUIS [Concomitant]
     Active Substance: APIXABAN
     Indication: ANTICOAGULANT THERAPY
     Dosage: 2.5 OT, BID
     Route: 065
     Dates: start: 2015
  5. ENTRESTO [Suspect]
     Active Substance: SACUBITRIL\VALSARTAN
     Indication: CARDIAC FAILURE
     Dosage: 1 DF (97/103 MG), BID
     Route: 048
     Dates: start: 20160704, end: 20170316
  6. BISOPROLOL [Concomitant]
     Active Substance: BISOPROLOL
     Indication: CARDIAC FAILURE
     Dosage: 5 OT, QD
     Route: 065
     Dates: start: 2010
  7. ENTRESTO [Suspect]
     Active Substance: SACUBITRIL\VALSARTAN
     Dosage: 1 DF (49/51 MG), BID
     Route: 048
     Dates: start: 20170502

REACTIONS (5)
  - Epilepsy [Unknown]
  - Hypotension [Unknown]
  - Amaurosis fugax [Recovering/Resolving]
  - Visual impairment [Recovering/Resolving]
  - Transient ischaemic attack [Unknown]

NARRATIVE: CASE EVENT DATE: 20170313
